FAERS Safety Report 5807118-7 (Version None)
Quarter: 2008Q3

REPORT INFORMATION
  Report Type: 
  Country: None (occurrence: None)
  Receive Date: 20080709
  Receipt Date: 20080709
  Transmission Date: 20090109
  Serious: Yes (Hospitalization)
  Sender: FDA-Public Use
  Company Number: None

PATIENT
  Sex: Male
  Weight: 72 kg

DRUGS (3)
  1. PEGASYS [Suspect]
     Indication: HEPATITIS C VIRUS TEST
     Dosage: 1 WEEKLY SQ
     Route: 058
     Dates: start: 20060901, end: 20060901
  2. PEGASYS [Suspect]
     Indication: HIV INFECTION
     Dosage: 1 WEEKLY SQ
     Route: 058
     Dates: start: 20060901, end: 20060901
  3. COPEGUS [Suspect]
     Dosage: 1000 OR 1200 DAILY PO
     Route: 048
     Dates: start: 20070301, end: 20070301

REACTIONS (2)
  - BURKITT'S LYMPHOMA [None]
  - IDIOPATHIC THROMBOCYTOPENIC PURPURA [None]
